FAERS Safety Report 8989001 (Version 1)
Quarter: 2012Q4

REPORT INFORMATION
  Report Type: Spontaneous
  Country: US (occurrence: None)
  Receive Date: 20121224
  Receipt Date: 20121224
  Transmission Date: 20130627
  Serious: Yes (Hospitalization)
  Sender: FDA-Public Use
  Company Number: None

PATIENT
  Age: 57 Year
  Sex: Male
  Weight: 74.4 kg

DRUGS (1)
  1. NAPROXEN [Suspect]
     Indication: PAIN
     Dosage: MG BID PO
     Route: 048
     Dates: start: 20101117, end: 20121012

REACTIONS (2)
  - Angioedema [None]
  - Dysphagia [None]
